FAERS Safety Report 13049523 (Version 3)
Quarter: 2017Q1

REPORT INFORMATION
  Report Type: Report from Study
  Country: US (occurrence: US)
  Receive Date: 20161221
  Receipt Date: 20170213
  Transmission Date: 20170428
  Serious: Yes (Hospitalization, Other)
  Sender: FDA-Public Use
  Company Number: US-GILEAD-2016-0249463

PATIENT
  Age: 51 Year
  Sex: Male
  Weight: 93.88 kg

DRUGS (3)
  1. AMBRISENTAN [Suspect]
     Active Substance: AMBRISENTAN
     Indication: PULMONARY ARTERIAL HYPERTENSION
     Dosage: 10 MG, QD
     Route: 065
     Dates: start: 20070830
  2. ADCIRCA [Concomitant]
     Active Substance: TADALAFIL
  3. SAMSCA [Concomitant]
     Active Substance: TOLVAPTAN

REACTIONS (3)
  - Joint swelling [Unknown]
  - Knee operation [Unknown]
  - Joint fluid drainage [Unknown]

NARRATIVE: CASE EVENT DATE: 201612
